FAERS Safety Report 5131284-2 (Version None)
Quarter: 2006Q4

REPORT INFORMATION
  Report Type: 
  Country: None (occurrence: None)
  Receive Date: 20061016
  Receipt Date: 20061006
  Transmission Date: 20070319
  Serious: Yes (Disabling, Other)
  Sender: FDA-Public Use
  Company Number: 2006070865

PATIENT
  Sex: Female
  Weight: 44.4525 kg

DRUGS (3)
  1. LIPITOR [Suspect]
     Indication: HYPERLIPIDAEMIA
     Dosage: 40 MG (40 MG, DAILY), ORAL
     Route: 048
     Dates: start: 20050101
  2. SINEMET [Concomitant]
  3. MIRAPEX [Concomitant]

REACTIONS (7)
  - ASPARTATE AMINOTRANSFERASE INCREASED [None]
  - BLOOD CREATINE PHOSPHOKINASE INCREASED [None]
  - DYSARTHRIA [None]
  - DYSPHAGIA [None]
  - MUSCLE NECROSIS [None]
  - MUSCULAR WEAKNESS [None]
  - MYOPATHY [None]
